FAERS Safety Report 14128432 (Version 1)
Quarter: 2017Q4

REPORT INFORMATION
  Report Type: Report from Study
  Country: CA (occurrence: CA)
  Receive Date: 20171026
  Receipt Date: 20171026
  Transmission Date: 20180321
  Serious: Yes (Disabling, Other)
  Sender: FDA-Public Use
  Company Number: CA-AMGEN-CANSL2017139602

PATIENT
  Age: 76 Year
  Sex: Female
  Weight: 60.77 kg

DRUGS (3)
  1. VASOTEC [Concomitant]
     Active Substance: ENALAPRIL MALEATE
     Dosage: 10 UNK, UNK
  2. PROLIA [Suspect]
     Active Substance: DENOSUMAB
     Indication: OSTEOPOROTIC FRACTURE
  3. PROLIA [Suspect]
     Active Substance: DENOSUMAB
     Indication: OSTEOPOROSIS POSTMENOPAUSAL
     Dosage: 60 MG, UNK
     Route: 058
     Dates: start: 2015

REACTIONS (1)
  - Upper limb fracture [Recovered/Resolved]

NARRATIVE: CASE EVENT DATE: 20170627
